FAERS Safety Report 20638429 (Version 1)
Quarter: 2022Q1

REPORT INFORMATION
  Report Type: Spontaneous
  Country: US (occurrence: None)
  Receive Date: 20220325
  Receipt Date: 20220325
  Transmission Date: 20220424
  Serious: Yes (Life-Threatening, Other)
  Sender: FDA-Public Use
  Company Number: None

PATIENT
  Age: 69 Year
  Sex: Male
  Weight: 113.4 kg

DRUGS (5)
  1. FLUOROURACIL [Suspect]
     Active Substance: FLUOROURACIL
     Indication: Actinic keratosis
     Dosage: OTHER STRENGTH : FU-5 5%;?FREQUENCY : TWICE A DAY;?
     Route: 061
     Dates: start: 20220309, end: 20220312
  2. FU-5 [Concomitant]
     Dates: start: 20220309, end: 20220312
  3. Calcipotriene 0.005% [Concomitant]
     Dates: start: 20220309, end: 20220312
  4. Lisinopril 12.5 [Concomitant]
  5. ALCLOMETASONE DIPROPIONATE [Suspect]
     Active Substance: ALCLOMETASONE DIPROPIONATE

REACTIONS (1)
  - Photosensitivity reaction [None]

NARRATIVE: CASE EVENT DATE: 20220317
